FAERS Safety Report 10016070 (Version 2)
Quarter: 2014Q2

REPORT INFORMATION
  Report Type: Report from Study
  Country: CH (occurrence: CH)
  Receive Date: 20140317
  Receipt Date: 20140408
  Transmission Date: 20141212
  Serious: Yes (Hospitalization)
  Sender: FDA-Public Use
  Company Number: CH-TEVA-467138ISR

PATIENT
  Age: 53 Year
  Sex: Male

DRUGS (2)
  1. GEMCITABINE [Suspect]
     Indication: PANCREATIC CARCINOMA
     Dosage: 2000 MILLIGRAM DAILY;
     Route: 042
     Dates: start: 20110404, end: 20110516
  2. VOLTAREN [Concomitant]
     Indication: INFLAMMATION
     Dosage: 50 MILLIGRAM DAILY; UNKNOWN WHETHER CONTINUED OR DISCONTINUED
     Dates: start: 20110502

REACTIONS (8)
  - Pneumonitis [Recovered/Resolved]
  - Lung disorder [Recovered/Resolved]
  - Diabetes mellitus [Recovered/Resolved]
  - Normochromic normocytic anaemia [Unknown]
  - Cholestasis [Unknown]
  - Transaminases increased [Unknown]
  - Pyrexia [Recovered/Resolved]
  - Cough [Recovered/Resolved]
